FAERS Safety Report 8854165 (Version 3)
Quarter: 2013Q1

REPORT INFORMATION
  Report Type: Spontaneous
  Country: US (occurrence: None)
  Receive Date: 20121018
  Receipt Date: 20121119
  Transmission Date: 20140127
  Serious: Yes (Other)
  Sender: FDA-Public Use
  Company Number: US-009777

PATIENT
  Age: 45 Year
  Sex: Female
  Weight: 113.4 kg

DRUGS (10)
  1. TRANEXAMIC ACID [Suspect]
     Indication: MENORRHAGIA
     Dosage: 1300 MG TID, 2 TABLETS THREE TIMES DAILY FOR 5 DAYS DURING MENSES
     Dates: start: 201207, end: 201207
  2. APRI [Suspect]
     Indication: CONTRACEPTION
     Dosage: (BEEN ON APRI FOR A LONG TIME- APPROXIMATELY MROE THAN TWO YEARS AGO)
     Dates: start: 2010, end: 20120930
  3. OMEPRAZOLE [Concomitant]
  4. PRAVASTATIN [Concomitant]
  5. CETIRIZINE [Concomitant]
  6. SINGULAIR [Concomitant]
  7. DAILY VITAMINS [Concomitant]
  8. VITAMIN D3 [Concomitant]
  9. MOBIC [Suspect]
  10. ARTHROTEC [Suspect]

REACTIONS (22)
  - Colitis [None]
  - Drug ineffective [None]
  - Vaginal haemorrhage [None]
  - Thrombosis [None]
  - Back pain [None]
  - Headache [None]
  - Arthralgia [None]
  - Pain in extremity [None]
  - Nausea [None]
  - Decreased appetite [None]
  - Abdominal pain [None]
  - Diarrhoea [None]
  - Faeces discoloured [None]
  - Urinary tract infection [None]
  - Dehydration [None]
  - Ileitis [None]
  - Joint injury [None]
  - Hypophagia [None]
  - Neck pain [None]
  - Inflammatory bowel disease [None]
  - Irritable bowel syndrome [None]
  - Menorrhagia [None]
